FAERS Safety Report 18187038 (Version 1)
Quarter: 2020Q3

REPORT INFORMATION
  Report Type: Spontaneous
  Country: US (occurrence: US)
  Receive Date: 20200824
  Receipt Date: 20200824
  Transmission Date: 20201103
  Serious: Yes (Hospitalization)
  Sender: FDA-Public Use
  Company Number: None

PATIENT
  Age: 36 Year
  Sex: Female

DRUGS (20)
  1. DOXYCYC MONO [Concomitant]
     Active Substance: DOXYCYCLINE
  2. NEOMYCIN. [Concomitant]
     Active Substance: NEOMYCIN
  3. KETOCONAZOLE. [Concomitant]
     Active Substance: KETOCONAZOLE
  4. METRONIDAZOL [Concomitant]
     Active Substance: METRONIDAZOLE
  5. MUPIROCIN. [Concomitant]
     Active Substance: MUPIROCIN
  6. OXYCODONE [Concomitant]
     Active Substance: OXYCODONE
  7. VALACYCLOVIR [Concomitant]
     Active Substance: VALACYCLOVIR HYDROCHLORIDE
  8. AMITRIPTLYN [Concomitant]
  9. A?HYDROCORT [Concomitant]
     Active Substance: HYDROCORTISONE SODIUM SUCCINATE
  10. PREVDNT 5000 PST [Concomitant]
  11. SPIRONOLACT [Concomitant]
     Active Substance: SPIRONOLACTONE
  12. TRETINOIN. [Concomitant]
     Active Substance: TRETINOIN
  13. DOXYCYCL HYC [Concomitant]
  14. HUMIRA [Suspect]
     Active Substance: ADALIMUMAB
     Indication: CROHN^S DISEASE
     Dosage: ?          OTHER DOSE:1 PEN;?
     Route: 058
     Dates: start: 20200515
  15. ALPRAZOLAM. [Concomitant]
     Active Substance: ALPRAZOLAM
  16. GAVILYTE G [Concomitant]
     Active Substance: POLYETHYLENE GLYCOL 3350\POTASSIUM CHLORIDE\SODIUM BICARBONATE\SODIUM CHLORIDE\SODIUM SULFATE ANHYDROUS
  17. FLUCONAZOLE. [Concomitant]
     Active Substance: FLUCONAZOLE
  18. FLUOXETINE [Concomitant]
     Active Substance: FLUOXETINE HYDROCHLORIDE
  19. TERCONAZOLE. [Concomitant]
     Active Substance: TERCONAZOLE
  20. ZOLPIDEM [Concomitant]
     Active Substance: ZOLPIDEM TARTRATE

REACTIONS (2)
  - Therapy interrupted [None]
  - Rectal prolapse repair [None]

NARRATIVE: CASE EVENT DATE: 20200821
